FAERS Safety Report 17721220 (Version 1)
Quarter: 2020Q2

REPORT INFORMATION
  Report Type: Spontaneous
  Country: CA (occurrence: CA)
  Receive Date: 20200429
  Receipt Date: 20200429
  Transmission Date: 20200714
  Serious: Yes (Hospitalization)
  Sender: FDA-Public Use
  Company Number: CA-ROCHE-2589641

PATIENT
  Age: 19 Month
  Sex: Female
  Weight: 12 kg

DRUGS (13)
  1. ACTILYSE [Suspect]
     Active Substance: ALTEPLASE
     Indication: THORACIC CAVITY DRAINAGE
     Route: 034
  2. HEPARIN CALCIUM [Concomitant]
     Active Substance: HEPARIN CALCIUM
  3. ACETAMINOPHEN. [Concomitant]
     Active Substance: ACETAMINOPHEN
  4. CEFTRIAXONE SODIUM. [Concomitant]
     Active Substance: CEFTRIAXONE SODIUM
     Route: 065
  5. CHOLECALCIFEROL [Concomitant]
     Active Substance: CHOLECALCIFEROL
  6. VANCOMYCIN [Concomitant]
     Active Substance: VANCOMYCIN
  7. AMPICILLIN [Concomitant]
     Active Substance: AMPICILLIN
  8. CLINDAMYCIN. [Concomitant]
     Active Substance: CLINDAMYCIN
     Route: 065
  9. DIPHENHYDRAMINE. [Concomitant]
     Active Substance: DIPHENHYDRAMINE
  10. PULMOZYME [Suspect]
     Active Substance: DORNASE ALFA
     Indication: PRODUCT USED FOR UNKNOWN INDICATION
     Route: 065
  11. CEFOTAXIME [Concomitant]
     Active Substance: CEFOTAXIME SODIUM
  12. MORPHINE [Concomitant]
     Active Substance: MORPHINE
  13. RELAXA [MACROGOL 3350] [Concomitant]
     Dosage: POWDER FOR SOLUTION ORAL
     Route: 065

REACTIONS (2)
  - Haemorrhage [Unknown]
  - Anaemia of chronic disease [Unknown]
